FAERS Safety Report 24372063 (Version 1)
Quarter: 2024Q3

REPORT INFORMATION
  Report Type: Spontaneous
  Country: US (occurrence: None)
  Receive Date: 20240926
  Receipt Date: 20240926
  Transmission Date: 20241017
  Serious: Yes (Hospitalization, Disabling)
  Sender: Public
  Company Number: None

PATIENT
  Age: 69 Year
  Sex: Male
  Weight: 87.75 kg

DRUGS (4)
  1. OXYBUTYNIN CHLORIDE [Suspect]
     Active Substance: OXYBUTYNIN CHLORIDE
     Indication: Hypertonic bladder
     Dosage: DAILY ORAL
     Route: 048
     Dates: start: 20230201, end: 20230627
  2. TAMSULOSIN [Concomitant]
     Active Substance: TAMSULOSIN
  3. MYRBETRIQ [Concomitant]
     Active Substance: MIRABEGRON
  4. amoldipine [Concomitant]

REACTIONS (9)
  - Tremor [None]
  - Temperature intolerance [None]
  - Cerebrovascular accident [None]
  - Hypohidrosis [None]
  - Therapy cessation [None]
  - Cerebrospinal fluid leakage [None]
  - Impaired quality of life [None]
  - Gingival disorder [None]
  - Tooth disorder [None]

NARRATIVE: CASE EVENT DATE: 20230401
